FAERS Safety Report 14811915 (Version 1)
Quarter: 2018Q2

REPORT INFORMATION
  Report Type: Report from Study
  Country: US (occurrence: US)
  Receive Date: 20180425
  Receipt Date: 20180425
  Transmission Date: 20180711
  Serious: No
  Sender: FDA-Public Use
  Company Number: US-AMGEN-USASL2018048181

PATIENT
  Age: 73 Year
  Sex: Female

DRUGS (1)
  1. REPATHA [Suspect]
     Active Substance: EVOLOCUMAB
     Indication: BLOOD CHOLESTEROL INCREASED
     Dosage: 140 MG, UNK
     Route: 065
     Dates: start: 2017

REACTIONS (7)
  - Neuropathy peripheral [Unknown]
  - Fall [Unknown]
  - Muscle atrophy [Unknown]
  - Gait disturbance [Unknown]
  - Muscle spasms [Unknown]
  - Limb discomfort [Unknown]
  - Rhinorrhoea [Unknown]
